FAERS Safety Report 4771715-0 (Version None)
Quarter: 2005Q3

REPORT INFORMATION
  Report Type: 
  Country: None (occurrence: None)
  Receive Date: 20050916
  Receipt Date: 20050825
  Transmission Date: 20060218
  Serious: Yes (Hospitalization)
  Sender: FDA-Public Use
  Company Number: PHBS2005JP12405

PATIENT
  Age: 19 Year
  Sex: Female

DRUGS (8)
  1. VOLTAREN [Suspect]
     Route: 048
     Dates: end: 20050824
  2. TEGRETOL [Suspect]
     Indication: BORDERLINE PERSONALITY DISORDER
     Route: 048
     Dates: end: 20050824
  3. PURSENNID [Suspect]
     Dates: end: 20050824
  4. DEPAS [Suspect]
     Dosage: UNK, UNK
     Route: 048
  5. ONON [Suspect]
     Route: 048
  6. GASTER D [Suspect]
     Route: 048
  7. PL GRAN. [Suspect]
     Route: 048
  8. SEDES G [Concomitant]
     Route: 048

REACTIONS (2)
  - BLOOD CREATINE PHOSPHOKINASE INCREASED [None]
  - INTERSTITIAL LUNG DISEASE [None]
